FAERS Safety Report 18704778 (Version 2)
Quarter: 2021Q1

REPORT INFORMATION
  Report Type: Report from Study
  Country: None (occurrence: MX)
  Receive Date: 20210105
  Receipt Date: 20210108
  Transmission Date: 20210419
  Serious: Yes (Death, Hospitalization, Other)
  Sender: FDA-Public Use
  Company Number: MX-ABBVIE-21K-107-3716100-00

PATIENT
  Age: 63 Year
  Sex: Female
  Weight: 44 kg

DRUGS (1)
  1. HUMIRA [Suspect]
     Active Substance: ADALIMUMAB
     Indication: COLITIS ULCERATIVE
     Route: 058
     Dates: start: 20180428, end: 20201005

REACTIONS (8)
  - Septic shock [Fatal]
  - Hiatus hernia [Fatal]
  - Haemoglobin decreased [Unknown]
  - Cardiac arrest [Fatal]
  - Anaphylactic shock [Recovered/Resolved]
  - Pulmonary oedema [Fatal]
  - Thrombosis [Fatal]
  - Septic shock [Fatal]

NARRATIVE: CASE EVENT DATE: 202001
